FAERS Safety Report 19164730 (Version 1)
Quarter: 2021Q2

REPORT INFORMATION
  Report Type: Spontaneous
  Country: BR (occurrence: BR)
  Receive Date: 20210421
  Receipt Date: 20210421
  Transmission Date: 20210717
  Serious: Yes (Other)
  Sender: FDA-Public Use
  Company Number: BR-ROCHE-2813629

PATIENT
  Age: 34 Year
  Sex: Male

DRUGS (2)
  1. METALYSE [Suspect]
     Active Substance: TENECTEPLASE
     Indication: PULMONARY EMBOLISM
     Route: 065
     Dates: start: 20210408
  2. RIVAROXABAN [Concomitant]
     Active Substance: RIVAROXABAN
     Dates: start: 20210407

REACTIONS (3)
  - Haemoptysis [Recovered/Resolved]
  - Off label use [Unknown]
  - Pulmonary haemorrhage [Recovered/Resolved]

NARRATIVE: CASE EVENT DATE: 20210408
